FAERS Safety Report 19559341 (Version 1)
Quarter: 2021Q3

REPORT INFORMATION
  Report Type: Spontaneous
  Country: US (occurrence: US)
  Receive Date: 20210714
  Receipt Date: 20210714
  Transmission Date: 20211014
  Serious: No
  Sender: FDA-Public Use
  Company Number: US-SK LIFE SCIENCE, INC-SKPVG-2020-000344

PATIENT

DRUGS (10)
  1. MELATONIN                          /07129401/ [Concomitant]
     Active Substance: CALCIUM\IRON\MELATONIN\PYRIDOXINE HYDROCHLORIDE
     Indication: PRODUCT USED FOR UNKNOWN INDICATION
     Dosage: 33 MILLIGRAM
     Route: 065
  2. XCOPRI [Suspect]
     Active Substance: CENOBAMATE
     Indication: FOCAL DYSCOGNITIVE SEIZURES
     Dosage: 12.5 MILLIGRAM, QD
     Route: 048
     Dates: start: 2020
  3. BRIVIACT [Suspect]
     Active Substance: BRIVARACETAM
     Indication: PRODUCT USED FOR UNKNOWN INDICATION
     Dosage: 100 MILLIGRAM
     Route: 065
  4. VITAMIN B12 [Concomitant]
     Active Substance: CYANOCOBALAMIN
     Indication: PRODUCT USED FOR UNKNOWN INDICATION
     Route: 065
  5. XCOPRI [Suspect]
     Active Substance: CENOBAMATE
     Dosage: 25 MILLIGRAM, 1 TABLET QD
     Route: 048
     Dates: start: 2020, end: 20201005
  6. VITAMIN D                          /00107901/ [Concomitant]
     Active Substance: ERGOCALCIFEROL
     Indication: PRODUCT USED FOR UNKNOWN INDICATION
     Dosage: 5000 2 DAILY
     Route: 065
  7. FYCOMPA [Suspect]
     Active Substance: PERAMPANEL
     Indication: PRODUCT USED FOR UNKNOWN INDICATION
     Dosage: 6 MILLIGRAM
     Route: 065
  8. TROKENDI [Suspect]
     Active Substance: TOPIRAMATE
     Indication: PRODUCT USED FOR UNKNOWN INDICATION
     Dosage: 200 MILLIGRAM
     Route: 065
  9. XCOPRI [Suspect]
     Active Substance: CENOBAMATE
     Dosage: 12.5 MILLIGRAM, QD
     Route: 048
     Dates: start: 20201103
  10. LEVOTHYROXINE. [Concomitant]
     Active Substance: LEVOTHYROXINE
     Indication: PRODUCT USED FOR UNKNOWN INDICATION
     Dosage: 25 MICROGRAM, 1 AT AM
     Route: 065

REACTIONS (5)
  - Nocturia [Recovered/Resolved]
  - Product dose omission issue [Recovered/Resolved]
  - Dizziness [Recovered/Resolved]
  - Headache [Recovered/Resolved]
  - Tremor [Recovered/Resolved]

NARRATIVE: CASE EVENT DATE: 2020
